FAERS Safety Report 4675783-6 (Version None)
Quarter: 2005Q2

REPORT INFORMATION
  Report Type: 
  Country: None (occurrence: None)
  Receive Date: 20050525
  Receipt Date: 20050512
  Transmission Date: 20051028
  Serious: Yes (Other)
  Sender: FDA-Public Use
  Company Number: 6014848F

PATIENT
  Age: 49 Year
  Sex: Male

DRUGS (1)
  1. NIASPAN [Suspect]
     Indication: HIGH DENSITY LIPOPROTEIN DECREASED
     Dosage: 375 MG QD PO
     Route: 048
     Dates: start: 20050429, end: 20050501

REACTIONS (1)
  - ANGIONEUROTIC OEDEMA [None]
